FAERS Safety Report 9237233 (Version 2)
Quarter: 2013Q2

REPORT INFORMATION
  Report Type: Report from Study
  Country: DE (occurrence: DE)
  Receive Date: 20130417
  Receipt Date: 20130424
  Transmission Date: 20140414
  Serious: Yes (Hospitalization)
  Sender: FDA-Public Use
  Company Number: DE-ROCHE-1169328

PATIENT
  Age: 70 Year
  Sex: Female
  Weight: 68.3 kg

DRUGS (7)
  1. DOXORUBICIN/DOXORUBICIN HYDROCHLORIDE [Suspect]
     Indication: BREAST CANCER
     Dosage: DATE OF LAST DOSE PRIOR TO SAE 10/DEC/2012
     Route: 042
     Dates: start: 20120903, end: 20121210
  2. DOXORUBICIN/DOXORUBICIN HYDROCHLORIDE [Suspect]
     Route: 042
     Dates: start: 20121227
  3. TRASTUZUMAB [Suspect]
     Indication: BREAST CANCER
     Dosage: DATE OF LAST DOSE PRIOR TO SAE 13/DEC/2012
     Route: 042
     Dates: start: 20120903
  4. PACLITAXEL [Suspect]
     Indication: BREAST CANCER
     Dosage: DATE OF LAST DOSE PRIOR TO SAE 10/DEC/2012
     Route: 042
     Dates: start: 20120303, end: 20121210
  5. PACLITAXEL [Suspect]
     Route: 042
     Dates: start: 20121227
  6. LAPATINIB [Suspect]
     Indication: BREAST CANCER
     Dosage: DATE OF LAST DOSE PRIOR TO SAE 13/DEC/2012
     Route: 048
     Dates: start: 20120903, end: 20121210
  7. LAPATINIB [Suspect]
     Route: 048
     Dates: start: 20130110

REACTIONS (2)
  - Cardiovascular disorder [Not Recovered/Not Resolved]
  - General physical health deterioration [Recovered/Resolved]
